FAERS Safety Report 21058172 (Version 1)
Quarter: 2022Q3

REPORT INFORMATION
  Report Type: Spontaneous
  Country: CA (occurrence: CA)
  Receive Date: 20220708
  Receipt Date: 20220708
  Transmission Date: 20221026
  Serious: Yes (Other)
  Sender: FDA-Public Use
  Company Number: CA-PFIZER INC-202200935365

PATIENT
  Age: 88 Year
  Sex: Male

DRUGS (2)
  1. ATORVASTATIN CALCIUM [Interacting]
     Active Substance: ATORVASTATIN CALCIUM
     Route: 065
  2. COLCHICINE [Interacting]
     Active Substance: COLCHICINE

REACTIONS (3)
  - Drug interaction [Unknown]
  - Drug-disease interaction [Unknown]
  - Drug-induced liver injury [Unknown]
